FAERS Safety Report 9731341 (Version 5)
Quarter: 2014Q1

REPORT INFORMATION
  Report Type: Spontaneous
  Country: US (occurrence: US)
  Receive Date: 20131205
  Receipt Date: 20140129
  Transmission Date: 20141002
  Serious: Yes (Hospitalization)
  Sender: FDA-Public Use
  Company Number: US-BAXTER-2013BAX048151

PATIENT
  Sex: Male

DRUGS (4)
  1. DIANEAL PD2 [Suspect]
     Indication: PERITONEAL DIALYSIS
     Route: 033
     Dates: start: 20130816
  2. DIANEAL PD2 [Suspect]
     Route: 033
     Dates: start: 20130816
  3. DIANEAL PD2 [Suspect]
     Indication: PERITONEAL DIALYSIS
     Route: 033
     Dates: start: 20130816
  4. DIANEAL PD2 [Suspect]
     Route: 033
     Dates: start: 20130816

REACTIONS (5)
  - Septic shock [Recovering/Resolving]
  - Cellulitis [Recovering/Resolving]
  - Post procedural infection [Recovering/Resolving]
  - Pain [Unknown]
  - Drug administration error [Unknown]
